FAERS Safety Report 11552531 (Version 2)
Quarter: 2015Q3

REPORT INFORMATION
  Report Type: Spontaneous
  Country: US (occurrence: US)
  Receive Date: 20150925
  Receipt Date: 20150925
  Transmission Date: 20151125
  Serious: No
  Sender: FDA-Public Use
  Company Number: US-009507513-1509USA011907

PATIENT
  Age: 62 Year
  Sex: Male

DRUGS (3)
  1. BELSOMRA [Suspect]
     Active Substance: SUVOREXANT
     Dosage: THE PATIENT WAS ADVISED TO SPLIT HIS 10 MG BELSOMRA TABLET IN HALF SO HE COULD TRY A 15 MG DOSE
     Route: 048
     Dates: start: 201509
  2. BELSOMRA [Suspect]
     Active Substance: SUVOREXANT
     Indication: INSOMNIA
     Dosage: 10 MG, ONCE AT NIGHT
     Route: 048
     Dates: start: 20150915
  3. DIAZEPAM. [Concomitant]
     Active Substance: DIAZEPAM
     Route: 048

REACTIONS (2)
  - Drug ineffective [Unknown]
  - Wrong technique in product usage process [Unknown]

NARRATIVE: CASE EVENT DATE: 201509
